FAERS Safety Report 7068771-6 (Version None)
Quarter: 2010Q4

REPORT INFORMATION
  Report Type: 
  Country: None (occurrence: None)
  Receive Date: 20101028
  Receipt Date: 20100617
  Transmission Date: 20110411
  Serious: Yes (Hospitalization, Other)
  Sender: FDA-Public Use
  Company Number: US-ASTRAZENECA-2009UW08641

PATIENT
  Age: 53 Year
  Sex: Male
  Weight: 105.7 kg

DRUGS (4)
  1. SEROQUEL [Suspect]
     Indication: DEPRESSION
     Dosage: 400MG TOTAL DAILY DOSE THREE TIMES PER DAY
     Route: 048
     Dates: start: 20000101
  2. SEROQUEL [Suspect]
     Route: 048
  3. AMYTRIPTILINE [Concomitant]
     Indication: DEPRESSION
  4. HYDROCODONE [Concomitant]
     Indication: NEURALGIA

REACTIONS (10)
  - ARTHROPATHY [None]
  - DEPRESSION [None]
  - DIABETES MELLITUS [None]
  - DRUG DOSE OMISSION [None]
  - DRUG INEFFECTIVE [None]
  - HALLUCINATION [None]
  - INSOMNIA [None]
  - NIGHT SWEATS [None]
  - PERFORATED ULCER [None]
  - SUICIDAL IDEATION [None]
